FAERS Safety Report 7183125-X (Version None)
Quarter: 2010Q4

REPORT INFORMATION
  Report Type: 
  Country: None (occurrence: None)
  Receive Date: 20101222
  Receipt Date: 20101216
  Transmission Date: 20110411
  Serious: Yes (Hospitalization, Other)
  Sender: FDA-Public Use
  Company Number: US-RB-017033-10

PATIENT
  Age: 51 Year
  Sex: Male

DRUGS (5)
  1. MUCINEX DM [Suspect]
     Indication: COUGH
     Dosage: PATIENT TOOK TWO TABLETS AT APPROXIMATELY MIDNIGHT.
     Route: 048
  2. MUCINEX DM [Suspect]
     Indication: NASOPHARYNGITIS
     Dosage: PATIENT TOOK TWO TABLETS AT APPROXIMATELY MIDNIGHT.
     Route: 048
  3. MULTI-VITAMINS [Concomitant]
  4. VITAMIN E [Concomitant]
  5. ADVIL [Concomitant]

REACTIONS (10)
  - CONFUSIONAL STATE [None]
  - CONVULSION [None]
  - DISORIENTATION [None]
  - FEELING ABNORMAL [None]
  - HAEMORRHAGE [None]
  - HEAD INJURY [None]
  - HEART RATE DECREASED [None]
  - HYPOTENSION [None]
  - SYNCOPE [None]
  - URINARY INCONTINENCE [None]
